FAERS Safety Report 16174922 (Version 1)
Quarter: 2019Q2

REPORT INFORMATION
  Report Type: Spontaneous
  Country: US (occurrence: US)
  Receive Date: 20190409
  Receipt Date: 20190409
  Transmission Date: 20190711
  Serious: No
  Sender: FDA-Public Use
  Company Number: US-PERRIGO-18US003080

PATIENT
  Age: 10 Year
  Sex: Male
  Weight: 36.28 kg

DRUGS (1)
  1. MIDOL LONG LASTING RELIEF [Suspect]
     Active Substance: ACETAMINOPHEN
     Indication: WRONG PRODUCT ADMINISTERED
     Dosage: 650 MG, SINGLE
     Route: 048
     Dates: start: 20180315, end: 20180315

REACTIONS (1)
  - Wrong product administered [Recovered/Resolved]

NARRATIVE: CASE EVENT DATE: 20180315
